FAERS Safety Report 18905948 (Version 6)
Quarter: 2025Q3

REPORT INFORMATION
  Report Type: Report from Study
  Country: US (occurrence: US)
  Receive Date: 20210217
  Receipt Date: 20250711
  Transmission Date: 20251021
  Serious: Yes (Hospitalization, Other)
  Sender: TAKEDA
  Company Number: US-TAKEDA-2021TUS010036

PATIENT
  Age: 1 Year
  Sex: Male

DRUGS (4)
  1. ADVATE [Suspect]
     Active Substance: ANTIHEMOPHILIC FACTOR, HUMAN RECOMBINANT
     Indication: Product used for unknown indication
  2. ADVATE [Suspect]
     Active Substance: ANTIHEMOPHILIC FACTOR, HUMAN RECOMBINANT
  3. ADVATE [Suspect]
     Active Substance: ANTIHEMOPHILIC FACTOR, HUMAN RECOMBINANT
  4. AMOXICILLIN [Concomitant]
     Active Substance: AMOXICILLIN

REACTIONS (10)
  - Haemarthrosis [Recovered/Resolved]
  - Epistaxis [Unknown]
  - Haemorrhage [Recovered/Resolved]
  - Haematoma [Unknown]
  - Nasal injury [Unknown]
  - Lip injury [Unknown]
  - Fall [Unknown]
  - Road traffic accident [Unknown]
  - Ear infection [Unknown]
  - Limb injury [Unknown]

NARRATIVE: CASE EVENT DATE: 20210208
